FAERS Safety Report 16788480 (Version 1)
Quarter: 2019Q3

REPORT INFORMATION
  Report Type: Spontaneous
  Country: RO (occurrence: RO)
  Receive Date: 20190910
  Receipt Date: 20190910
  Transmission Date: 20191005
  Serious: Yes (Hospitalization, Other)
  Sender: FDA-Public Use
  Company Number: RO-ABBVIE-19K-135-2913652-00

PATIENT
  Age: 61 Year
  Sex: Male
  Weight: 125 kg

DRUGS (3)
  1. HUMIRA [Suspect]
     Active Substance: ADALIMUMAB
     Indication: PSORIASIS
     Route: 058
     Dates: start: 201403, end: 201906
  2. SARGENOR [Concomitant]
     Active Substance: ARGININE ASPARTATE
     Indication: PROPHYLAXIS
     Route: 048
     Dates: start: 201907, end: 201908
  3. ESENTIN [Concomitant]
     Indication: PROPHYLAXIS
     Route: 048
     Dates: start: 201907, end: 201908

REACTIONS (4)
  - Splenic lesion [Unknown]
  - Asthenia [Unknown]
  - Splenomegaly [Unknown]
  - Decreased appetite [Unknown]

NARRATIVE: CASE EVENT DATE: 201905
